FAERS Safety Report 8225964-X (Version None)
Quarter: 2012Q1

REPORT INFORMATION
  Report Type: 
  Country: None (occurrence: None)
  Receive Date: 20120321
  Receipt Date: 20120306
  Transmission Date: 20120608
  Serious: Yes (Hospitalization, Other)
  Sender: FDA-Public Use
  Company Number: CHPA2012US004619

PATIENT
  Sex: Male

DRUGS (2)
  1. EXCEDRIN EXTRA STRENGTH TABLETS [Suspect]
     Dosage: 2 DF, ONCE/SINGLE
     Route: 048
     Dates: start: 20120107, end: 20120107
  2. EXCEDRIN EXTRA STRENGTH TABLETS [Suspect]
     Indication: TOOTH ABSCESS
     Dosage: 2 DF, ONCE/SINGLE
     Route: 048
     Dates: start: 20120106, end: 20120106

REACTIONS (15)
  - BUNDLE BRANCH BLOCK RIGHT [None]
  - MONOCYTE COUNT INCREASED [None]
  - ANION GAP DECREASED [None]
  - BLOOD CALCIUM DECREASED [None]
  - OFF LABEL USE [None]
  - BRADYCARDIA [None]
  - ABDOMINAL PAIN [None]
  - LYMPHOCYTE COUNT DECREASED [None]
  - EOSINOPHIL COUNT INCREASED [None]
  - SWELLING [None]
  - NEUTROPHIL PERCENTAGE INCREASED [None]
  - LIPASE DECREASED [None]
  - BLOOD GLUCOSE INCREASED [None]
  - GASTRIC DISORDER [None]
  - TOOTHACHE [None]
